FAERS Safety Report 24670343 (Version 2)
Quarter: 2024Q4

REPORT INFORMATION
  Report Type: Spontaneous
  Country: CA (occurrence: CA)
  Receive Date: 20241127
  Receipt Date: 20241201
  Transmission Date: 20250115
  Serious: Yes (Life-Threatening, Disabling, Other)
  Sender: Haleon PLC
  Company Number: CA-002147023-NVSC2024CA224789

PATIENT
  Sex: Female

DRUGS (93)
  1. TUMS [Suspect]
     Active Substance: CALCIUM CARBONATE
     Indication: Product used for unknown indication
     Route: 065
  2. DICLOFENAC [Suspect]
     Active Substance: DICLOFENAC
     Indication: Product used for unknown indication
     Route: 065
  3. CALTRATE [Suspect]
     Active Substance: CALCIUM CARBONATE
     Indication: Product used for unknown indication
     Route: 065
  4. CALCIUM CHLORIDE [Suspect]
     Active Substance: CALCIUM CHLORIDE
     Indication: Product used for unknown indication
     Route: 065
  5. DIETARY SUPPLEMENT\MINERALS\VITAMINS [Suspect]
     Active Substance: DIETARY SUPPLEMENT\MINERALS\VITAMINS
     Indication: Product used for unknown indication
     Dosage: UNK (400 UNIT)
     Route: 065
  6. DIETARY SUPPLEMENT\MINERALS\VITAMINS [Suspect]
     Active Substance: DIETARY SUPPLEMENT\MINERALS\VITAMINS
     Dosage: UNK (400 UNIT)
     Route: 065
  7. CELEBREX [Suspect]
     Active Substance: CELECOXIB
     Indication: Rheumatoid arthritis
     Route: 065
  8. CELEBREX [Suspect]
     Active Substance: CELECOXIB
     Route: 065
  9. CHLORHEXIDINE GLUCONATE [Suspect]
     Active Substance: CHLORHEXIDINE GLUCONATE
     Indication: Product used for unknown indication
     Route: 048
  10. CIMZIA [Suspect]
     Active Substance: CERTOLIZUMAB PEGOL
     Indication: Rheumatoid arthritis
     Route: 005
  11. CIMZIA [Suspect]
     Active Substance: CERTOLIZUMAB PEGOL
     Route: 058
  12. CIMZIA [Suspect]
     Active Substance: CERTOLIZUMAB PEGOL
     Route: 065
  13. CIMZIA [Suspect]
     Active Substance: CERTOLIZUMAB PEGOL
     Route: 065
  14. CIMZIA [Suspect]
     Active Substance: CERTOLIZUMAB PEGOL
     Route: 065
  15. CIMZIA [Suspect]
     Active Substance: CERTOLIZUMAB PEGOL
     Route: 058
  16. CLIOQUINOL [Suspect]
     Active Substance: CLIOQUINOL
     Indication: Rheumatoid arthritis
     Route: 058
  17. CORTISONE ACETATE [Suspect]
     Active Substance: CORTISONE ACETATE
     Indication: Rheumatoid arthritis
     Dosage: 25 MG (TOPICAL)
     Route: 065
  18. DESOXIMETASONE [Suspect]
     Active Substance: DESOXIMETASONE
     Indication: Rheumatoid arthritis
     Route: 048
  19. DESOXIMETASONE [Suspect]
     Active Substance: DESOXIMETASONE
     Route: 058
  20. DESOXIMETASONE [Suspect]
     Active Substance: DESOXIMETASONE
     Route: 065
  21. HUMIRA [Suspect]
     Active Substance: ADALIMUMAB
     Indication: Rheumatoid arthritis
     Route: 065
  22. HYDROCORTISONE [Suspect]
     Active Substance: HYDROCORTISONE
     Indication: Rheumatoid arthritis
     Route: 058
  23. HYDROCORTISONE [Suspect]
     Active Substance: HYDROCORTISONE
     Dosage: UNK (TOPICAL)
     Route: 065
  24. HYDROCORTISONE [Suspect]
     Active Substance: HYDROCORTISONE
     Dosage: UNK (TOPICAL)
     Route: 065
  25. HYDROXYCHLOROQUINE [Suspect]
     Active Substance: HYDROXYCHLOROQUINE
     Indication: Rheumatoid arthritis
     Route: 048
  26. HYDROXYCHLOROQUINE [Suspect]
     Active Substance: HYDROXYCHLOROQUINE
     Route: 048
  27. HYDROXYCHLOROQUINE [Suspect]
     Active Substance: HYDROXYCHLOROQUINE
     Route: 005
  28. HYDROXYCHLOROQUINE [Suspect]
     Active Substance: HYDROXYCHLOROQUINE
     Route: 048
  29. HYDROXYCHLOROQUINE [Suspect]
     Active Substance: HYDROXYCHLOROQUINE
     Route: 048
  30. HYDROXYCHLOROQUINE [Suspect]
     Active Substance: HYDROXYCHLOROQUINE
     Route: 065
  31. ISOPROPYL ALCOHOL [Suspect]
     Active Substance: ISOPROPYL ALCOHOL
     Indication: Rheumatoid arthritis
     Dosage: DOSE FORM:  LIQUID, UNK (TOPICAL)
     Route: 065
  32. NAPROXEN [Suspect]
     Active Substance: NAPROXEN
     Indication: Rheumatoid arthritis
     Route: 065
  33. NAPROXEN [Suspect]
     Active Substance: NAPROXEN
     Dosage: TABLET (ENTERIC COATED)
     Route: 065
  34. NAPROXEN SODIUM [Suspect]
     Active Substance: NAPROXEN SODIUM
     Indication: Rheumatoid arthritis
     Route: 065
  35. ORENCIA [Suspect]
     Active Substance: ABATACEPT
     Indication: Rheumatoid arthritis
     Route: 058
  36. ORENCIA [Suspect]
     Active Substance: ABATACEPT
     Route: 058
  37. ORENCIA [Suspect]
     Active Substance: ABATACEPT
     Route: 042
  38. OXYCODONE HYDROCHLORIDE [Suspect]
     Active Substance: OXYCODONE HYDROCHLORIDE
     Indication: Product used for unknown indication
     Route: 065
  39. OXYCODONE TEREPHTHALATE [Suspect]
     Active Substance: OXYCODONE TEREPHTHALATE
     Indication: Product used for unknown indication
     Route: 065
  40. CETIRIZINE HYDROCHLORIDE [Suspect]
     Active Substance: CETIRIZINE HYDROCHLORIDE
     Indication: Rheumatoid arthritis
     Route: 065
  41. CETIRIZINE HYDROCHLORIDE [Suspect]
     Active Substance: CETIRIZINE HYDROCHLORIDE
     Route: 049
  42. CETIRIZINE HYDROCHLORIDE [Suspect]
     Active Substance: CETIRIZINE HYDROCHLORIDE
     Route: 065
  43. CETIRIZINE HYDROCHLORIDE [Suspect]
     Active Substance: CETIRIZINE HYDROCHLORIDE
     Route: 065
  44. CETIRIZINE HYDROCHLORIDE [Suspect]
     Active Substance: CETIRIZINE HYDROCHLORIDE
     Route: 065
  45. CETIRIZINE HYDROCHLORIDE [Suspect]
     Active Substance: CETIRIZINE HYDROCHLORIDE
     Route: 065
  46. DICLOFENAC POTASSIUM [Suspect]
     Active Substance: DICLOFENAC POTASSIUM
     Indication: Product used for unknown indication
     Route: 065
  47. DICLOFENAC POTASSIUM [Suspect]
     Active Substance: DICLOFENAC POTASSIUM
     Route: 065
  48. DICLOFENAC POTASSIUM [Suspect]
     Active Substance: DICLOFENAC POTASSIUM
     Route: 065
  49. DICLOFENAC SODIUM [Suspect]
     Active Substance: DICLOFENAC SODIUM
     Indication: Product used for unknown indication
     Route: 065
  50. LISINOPRIL [Concomitant]
     Active Substance: LISINOPRIL
     Indication: Product used for unknown indication
  51. LORAZEPAM [Concomitant]
     Active Substance: LORAZEPAM
     Indication: Product used for unknown indication
  52. MAGNESIUM [Concomitant]
     Active Substance: MAGNESIUM
     Indication: Product used for unknown indication
  53. COSENTYX [Concomitant]
     Active Substance: SECUKINUMAB
     Indication: Product used for unknown indication
  54. PANTOPRAZOLE SODIUM [Concomitant]
     Active Substance: PANTOPRAZOLE SODIUM
     Indication: Product used for unknown indication
  55. COSENTYX [Suspect]
     Active Substance: SECUKINUMAB
     Indication: Psoriatic arthropathy
     Route: 065
  56. COSENTYX [Suspect]
     Active Substance: SECUKINUMAB
     Route: 042
  57. ACTEMRA [Suspect]
     Active Substance: TOCILIZUMAB
     Indication: Product used for unknown indication
     Route: 058
  58. ACTEMRA [Suspect]
     Active Substance: TOCILIZUMAB
     Indication: Rheumatoid arthritis
     Route: 065
  59. ACTEMRA [Suspect]
     Active Substance: TOCILIZUMAB
     Dosage: UNK (TOPICAL)
     Route: 065
  60. ADALIMUMAB [Suspect]
     Active Substance: ADALIMUMAB
     Indication: Rheumatoid arthritis
     Route: 065
  61. ADALIMUMAB [Suspect]
     Active Substance: ADALIMUMAB
     Route: 058
  62. ADALIMUMAB [Suspect]
     Active Substance: ADALIMUMAB
     Route: 058
  63. ARAVA [Suspect]
     Active Substance: LEFLUNOMIDE
     Indication: Rheumatoid arthritis
     Route: 005
  64. ARAVA [Suspect]
     Active Substance: LEFLUNOMIDE
     Route: 048
  65. DICLOFENAC DIETHYLAMINE [Suspect]
     Active Substance: DICLOFENAC DIETHYLAMINE
     Indication: Rheumatoid arthritis
     Route: 065
  66. DICLOFENAC DIETHYLAMINE [Suspect]
     Active Substance: DICLOFENAC DIETHYLAMINE
     Route: 065
  67. FLUMETHASONE [Suspect]
     Active Substance: FLUMETHASONE
     Indication: Rheumatoid arthritis
     Route: 058
  68. FOLIC ACID [Suspect]
     Active Substance: FOLIC ACID
     Indication: Rheumatoid arthritis
     Route: 048
  69. FOLIC ACID [Suspect]
     Active Substance: FOLIC ACID
     Route: 058
  70. FOLIC ACID [Suspect]
     Active Substance: FOLIC ACID
     Route: 058
  71. FOLIC ACID [Suspect]
     Active Substance: FOLIC ACID
     Route: 065
  72. FOLIC ACID [Suspect]
     Active Substance: FOLIC ACID
     Route: 065
  73. ERELZI [Suspect]
     Active Substance: ETANERCEPT-SZZS
     Indication: Rheumatoid arthritis
     Route: 058
  74. ERELZI [Suspect]
     Active Substance: ETANERCEPT-SZZS
     Route: 048
  75. ERELZI [Suspect]
     Active Substance: ETANERCEPT-SZZS
     Route: 058
  76. ERELZI [Suspect]
     Active Substance: ETANERCEPT-SZZS
     Route: 058
  77. ERELZI [Suspect]
     Active Substance: ETANERCEPT-SZZS
     Route: 058
  78. FOSAMAX [Suspect]
     Active Substance: ALENDRONATE SODIUM
     Indication: Rheumatoid arthritis
     Route: 016
  79. FOSAMAX [Suspect]
     Active Substance: ALENDRONATE SODIUM
     Route: 048
  80. LEFLUNOMIDE [Suspect]
     Active Substance: LEFLUNOMIDE
     Indication: Product used for unknown indication
     Route: 065
  81. METHOTREXATE [Suspect]
     Active Substance: METHOTREXATE
     Indication: Rheumatoid arthritis
     Route: 013
  82. METHOTREXATE [Suspect]
     Active Substance: METHOTREXATE
     Route: 048
  83. METHOTREXATE [Suspect]
     Active Substance: METHOTREXATE
     Route: 013
  84. METHOTREXATE [Suspect]
     Active Substance: METHOTREXATE
     Route: 058
  85. METHOTREXATE [Suspect]
     Active Substance: METHOTREXATE
     Route: 058
  86. METHOTREXATE [Suspect]
     Active Substance: METHOTREXATE
     Route: 013
  87. METHOTREXATE [Suspect]
     Active Substance: METHOTREXATE
     Route: 058
  88. METHOTREXATE [Suspect]
     Active Substance: METHOTREXATE
     Route: 013
  89. METHOTREXATE [Suspect]
     Active Substance: METHOTREXATE
     Route: 048
  90. METHOTREXATE [Suspect]
     Active Substance: METHOTREXATE
     Route: 065
  91. METHOTREXATE [Suspect]
     Active Substance: METHOTREXATE
     Route: 058
  92. METHOTREXATE [Suspect]
     Active Substance: METHOTREXATE
     Route: 013
  93. METHOTREXATE [Suspect]
     Active Substance: METHOTREXATE
     Route: 048

REACTIONS (12)
  - Liver injury [Not Recovered/Not Resolved]
  - Oedema [Not Recovered/Not Resolved]
  - Joint swelling [Not Recovered/Not Resolved]
  - Nausea [Not Recovered/Not Resolved]
  - Insomnia [Not Recovered/Not Resolved]
  - Gait disturbance [Not Recovered/Not Resolved]
  - Mobility decreased [Not Recovered/Not Resolved]
  - Pain in extremity [Not Recovered/Not Resolved]
  - Pemphigus [Not Recovered/Not Resolved]
  - Injury [Not Recovered/Not Resolved]
  - Dyspepsia [Not Recovered/Not Resolved]
  - Migraine [Not Recovered/Not Resolved]
